FAERS Safety Report 7138922-3 (Version None)
Quarter: 2010Q4

REPORT INFORMATION
  Report Type: 
  Country: None (occurrence: None)
  Receive Date: 20101206
  Receipt Date: 20101123
  Transmission Date: 20110411
  Serious: Yes (Hospitalization)
  Sender: FDA-Public Use
  Company Number: A0775468A

PATIENT
  Age: 47 Year
  Sex: Male
  Weight: 60.9 kg

DRUGS (7)
  1. AVANDIA [Suspect]
     Dosage: 8MG PER DAY
     Route: 048
     Dates: start: 20010101, end: 20060101
  2. AVAPRO [Concomitant]
  3. COREG [Concomitant]
  4. NORVASC [Concomitant]
  5. GLIPIZIDE [Concomitant]
  6. BICARBONATE [Concomitant]
  7. CARDURA [Concomitant]

REACTIONS (3)
  - BLOOD CHOLESTEROL INCREASED [None]
  - MYOCARDIAL INFARCTION [None]
  - VASCULAR GRAFT [None]
